FAERS Safety Report 8080289-0 (Version None)
Quarter: 2012Q1

REPORT INFORMATION
  Report Type: 
  Country: None (occurrence: None)
  Receive Date: 20120130
  Receipt Date: 20120124
  Transmission Date: 20120608
  Serious: Yes (Other)
  Sender: FDA-Public Use
  Company Number: US-BAYER-2012-008416

PATIENT
  Age: 75 Year
  Sex: Female

DRUGS (1)
  1. AVELOX [Suspect]
     Indication: SINUSITIS
     Dosage: 400 MG, QD
     Route: 048
     Dates: start: 20120111, end: 20120115

REACTIONS (5)
  - HEART RATE INCREASED [None]
  - CONFUSIONAL STATE [None]
  - DIZZINESS [None]
  - VISUAL IMPAIRMENT [None]
  - ANXIETY [None]
